FAERS Safety Report 23531646 (Version 1)
Quarter: 2024Q1

REPORT INFORMATION
  Report Type: Spontaneous
  Country: CA (occurrence: None)
  Receive Date: 20240216
  Receipt Date: 20240216
  Transmission Date: 20240410
  Serious: Yes (Other)
  Sender: FDA-Public Use
  Company Number: CA-PFIZER INC-202400040867

PATIENT
  Sex: Male

DRUGS (2)
  1. METHOTREXATE [Suspect]
     Active Substance: METHOTREXATE
     Indication: Granulomatosis with polyangiitis
  2. PREDNISONE [Suspect]
     Active Substance: PREDNISONE
     Indication: Granulomatosis with polyangiitis

REACTIONS (8)
  - Episcleritis [Unknown]
  - Haematuria [Unknown]
  - Mononeuropathy multiplex [Unknown]
  - Nasal septum ulceration [Unknown]
  - Orchitis [Unknown]
  - Peroneal nerve palsy [Unknown]
  - Skin ulcer [Unknown]
  - Product use in unapproved indication [Unknown]
